FAERS Safety Report 7880761-X (Version None)
Quarter: 2011Q4

REPORT INFORMATION
  Report Type: 
  Country: None (occurrence: None)
  Receive Date: 20111101
  Receipt Date: 20111017
  Transmission Date: 20120403
  Serious: Yes (Death)
  Sender: FDA-Public Use
  Company Number: TR-BAYER-2011-095930

PATIENT
  Age: 74 Year
  Sex: Female

DRUGS (14)
  1. ETHAMBUTOL HYDROCHLORIDE [Concomitant]
     Indication: TUBERCULOSIS
  2. RIFAMPIN [Concomitant]
     Indication: LISTERIOSIS
     Dosage: 600 MG, QD
  3. ETHAMBUTOL HYDROCHLORIDE [Concomitant]
     Indication: LISTERIOSIS
     Dosage: 1600 MG, QD
  4. PYRAZINAMIDE [Concomitant]
     Indication: TUBERCULOSIS
  5. ANALGESICS [Concomitant]
  6. ISONIAZID [Concomitant]
     Indication: LISTERIOSIS
     Dosage: 300 MG, QD
  7. ANTIDEPRESSANTS [Concomitant]
  8. AMPICILLIN SODIUM [Concomitant]
     Indication: LISTERIOSIS
     Dosage: DAILY DOSE 12 G
  9. RIFAMPIN [Concomitant]
     Indication: TUBERCULOSIS
  10. MOXIFLOXACIN [Suspect]
     Dosage: 400 MG, QD
     Route: 048
  11. PYRAZINAMIDE [Concomitant]
     Indication: LISTERIOSIS
     Dosage: 2000 MG, QD
  12. AMPICILLIN SODIUM [Concomitant]
     Indication: TUBERCULOSIS
  13. ISONIAZID [Concomitant]
     Indication: TUBERCULOSIS
  14. CEFTRIAXONE [Suspect]
     Dosage: 2 G, BID
     Route: 042

REACTIONS (9)
  - CAVERNOUS SINUS THROMBOSIS [None]
  - CONFUSIONAL STATE [None]
  - EXOPHTHALMOS [None]
  - NAUSEA [None]
  - CEREBRAL INFARCTION [None]
  - RESPIRATORY FAILURE [None]
  - TACHYPNOEA [None]
  - SINUSITIS ASPERGILLUS [None]
  - VOMITING [None]
